FAERS Safety Report 5498584-8 (Version None)
Quarter: 2007Q4

REPORT INFORMATION
  Report Type: 
  Country: None (occurrence: None)
  Receive Date: 20071026
  Receipt Date: 20071016
  Transmission Date: 20080405
  Serious: Yes (Other)
  Sender: FDA-Public Use
  Company Number: CA-JNJFOC-20071004432

PATIENT
  Sex: Male
  Weight: 94 kg

DRUGS (14)
  1. REMICADE [Suspect]
     Route: 042
  2. REMICADE [Suspect]
     Dosage: 9 INFUSIONS
     Route: 042
  3. REMICADE [Suspect]
     Indication: RHEUMATOID ARTHRITIS
     Route: 042
  4. METHOTREXATE [Concomitant]
  5. PREDNISONE [Concomitant]
  6. ACTONEL [Concomitant]
  7. PLAQUENIL [Concomitant]
  8. CALCIUM + VITAMIN D [Concomitant]
  9. FOLIC ACID [Concomitant]
  10. ALTACE [Concomitant]
  11. ATENOLOL [Concomitant]
  12. LIPITOR [Concomitant]
  13. ASAPHEN [Concomitant]
  14. PLAVIX [Concomitant]

REACTIONS (1)
  - PULMONARY MASS [None]
